FAERS Safety Report 4930542-1 (Version None)
Quarter: 2006Q1

REPORT INFORMATION
  Report Type: 
  Country: None (occurrence: None)
  Receive Date: 20060302
  Receipt Date: 20050816
  Transmission Date: 20060701
  Serious: Yes (Hospitalization)
  Sender: FDA-Public Use
  Company Number: US-MERCK-0508USA03109

PATIENT
  Age: 42 Year
  Sex: Male
  Weight: 157 kg

DRUGS (11)
  1. VIOXX [Suspect]
     Route: 048
  2. CALAN [Concomitant]
     Route: 048
  3. NORMODYNE [Concomitant]
     Route: 048
  4. LOVENOX [Concomitant]
     Route: 058
  5. ASPIRIN [Concomitant]
     Route: 048
  6. XANAX [Concomitant]
     Route: 048
  7. ZOLOFT [Concomitant]
     Route: 048
  8. PREVACID [Concomitant]
     Route: 048
  9. COLACE [Concomitant]
     Route: 048
  10. NITROGLYCERIN [Concomitant]
     Route: 061
  11. TRAZODONE HYDROCHLORIDE [Concomitant]
     Route: 048

REACTIONS (6)
  - ACUTE MYOCARDIAL INFARCTION [None]
  - CARDIAC ARREST [None]
  - CARDIAC DISORDER [None]
  - CARDIOVASCULAR DISORDER [None]
  - CORONARY ARTERY DISEASE [None]
  - CORONARY ARTERY OCCLUSION [None]
